FAERS Safety Report 21191983 (Version 1)
Quarter: 2022Q3

REPORT INFORMATION
  Report Type: Spontaneous
  Country: CN (occurrence: CN)
  Receive Date: 20220809
  Receipt Date: 20220809
  Transmission Date: 20221027
  Serious: Yes (Hospitalization)
  Sender: FDA-Public Use
  Company Number: CN-BAYER-2022A110272

PATIENT
  Age: 25 Year
  Sex: Female

DRUGS (11)
  1. AVELOX [Suspect]
     Active Substance: MOXIFLOXACIN HYDROCHLORIDE
     Indication: Pulmonary tuberculosis
     Dosage: 400 MG, QD
     Route: 048
     Dates: start: 20220402, end: 20220417
  2. AVELOX [Suspect]
     Active Substance: MOXIFLOXACIN HYDROCHLORIDE
     Indication: Pulmonary tuberculosis
     Dosage: 400 MG, ONCE
     Route: 048
     Dates: start: 20220424, end: 20220424
  3. BEDAQUILINE FUMARATE [Suspect]
     Active Substance: BEDAQUILINE FUMARATE
     Indication: Pulmonary tuberculosis
     Dosage: 0.4 G, QD
     Route: 048
     Dates: start: 20220402, end: 20220417
  4. BEDAQUILINE FUMARATE [Suspect]
     Active Substance: BEDAQUILINE FUMARATE
     Indication: Pulmonary tuberculosis
     Dosage: 0.2 G, ONCE
     Route: 048
     Dates: start: 20220418, end: 20220418
  5. ZYVOX [Concomitant]
     Active Substance: LINEZOLID
     Indication: Pulmonary tuberculosis
     Dosage: 0.6 G, QD
     Route: 048
     Dates: start: 20220402, end: 20220417
  6. ZYVOX [Concomitant]
     Active Substance: LINEZOLID
     Indication: Pulmonary tuberculosis
     Dosage: 0.6 G, ONCE
     Route: 048
     Dates: start: 20220418, end: 20220418
  7. ZYVOX [Concomitant]
     Active Substance: LINEZOLID
     Indication: Pulmonary tuberculosis
     Dosage: 0.3 G, ONCE
     Route: 048
     Dates: start: 20220420, end: 20220420
  8. ZYVOX [Concomitant]
     Active Substance: LINEZOLID
     Indication: Pulmonary tuberculosis
     Dosage: 0.6 G, ONCE
     Route: 048
     Dates: start: 20220422, end: 20220422
  9. CYCLOSERINE [Concomitant]
     Active Substance: CYCLOSERINE
     Indication: Pulmonary tuberculosis
     Dosage: 0.25 G, BID
     Route: 048
     Dates: start: 20220402, end: 20220417
  10. CYCLOSERINE [Concomitant]
     Active Substance: CYCLOSERINE
     Indication: Pulmonary tuberculosis
     Dosage: 0.25 G, ONCE
     Route: 048
     Dates: start: 20220422, end: 20220422
  11. VITAMIN B6 [Concomitant]
     Active Substance: PYRIDOXINE HYDROCHLORIDE
     Indication: Pulmonary tuberculosis
     Dosage: 100 MG, QD
     Route: 048
     Dates: start: 20220402

REACTIONS (9)
  - Pyrexia [Recovered/Resolved]
  - Flushing [Recovered/Resolved]
  - Pruritus [Recovered/Resolved]
  - Glossodynia [Recovered/Resolved]
  - Tongue disorder [Recovered/Resolved]
  - Flushing [Recovering/Resolving]
  - Paraesthesia [Recovering/Resolving]
  - Oropharyngeal pain [Recovering/Resolving]
  - Off label use [None]

NARRATIVE: CASE EVENT DATE: 20220402
